FAERS Safety Report 8241213-0 (Version None)
Quarter: 2012Q1

REPORT INFORMATION
  Report Type: 
  Country: None (occurrence: None)
  Receive Date: 20120328
  Receipt Date: 20120325
  Transmission Date: 20120608
  Serious: No
  Sender: FDA-Public Use
  Company Number: US-BAYER-2012-029776

PATIENT

DRUGS (5)
  1. ICY HOT [Concomitant]
     Route: 061
  2. SALONPAS PLASTERS [Concomitant]
     Dosage: UNK
     Route: 061
  3. ALEVE (CAPLET) [Suspect]
     Indication: MYALGIA
     Route: 048
  4. IBUPROFEN (ADVIL) [Concomitant]
     Dosage: UNK
  5. MUSCLE RELAXANTS [Concomitant]

REACTIONS (1)
  - MYALGIA [None]
